FAERS Safety Report 15803482 (Version 1)
Quarter: 2019Q1

REPORT INFORMATION
  Report Type: Spontaneous
  Country: JP (occurrence: JP)
  Receive Date: 20190109
  Receipt Date: 20190109
  Transmission Date: 20190417
  Serious: Yes (Hospitalization)
  Sender: FDA-Public Use
  Company Number: JP-MYLANLABS-2019M1001525

PATIENT
  Age: 84 Year
  Sex: Male

DRUGS (5)
  1. VERAPAMIL [Suspect]
     Active Substance: VERAPAMIL HYDROCHLORIDE
     Indication: ATRIAL FIBRILLATION
     Dosage: 120 MILLIGRAM
     Route: 048
     Dates: end: 201812
  2. BEPRICOR [Suspect]
     Active Substance: BEPRIDIL
     Indication: ATRIAL FIBRILLATION
     Dosage: 200 MILLIGRAM
     Route: 048
     Dates: start: 20161220
  3. BEPRICOR [Suspect]
     Active Substance: BEPRIDIL
     Dosage: 100 MILLIGRAM DECREASED TO 2 TABLETS/IN 2 DIVIDED DOSES (100 MG/IN 2 DIVIDED DOSES)
     Route: 048
     Dates: start: 20181126, end: 201812
  4. KREMEZIN [Concomitant]
     Active Substance: ACTIVATED CHARCOAL
  5. PERSANTINE [Concomitant]
     Active Substance: DIPYRIDAMOLE

REACTIONS (2)
  - Toxicity to various agents [Recovered/Resolved]
  - Electrocardiogram QT prolonged [Recovered/Resolved]

NARRATIVE: CASE EVENT DATE: 20181201
